FAERS Safety Report 7720823-0 (Version None)
Quarter: 2011Q3

REPORT INFORMATION
  Report Type: 
  Country: None (occurrence: None)
  Receive Date: 20110831
  Receipt Date: 20110822
  Transmission Date: 20111222
  Serious: Yes (Other)
  Sender: FDA-Public Use
  Company Number: US-JNJFOC-20110601983

PATIENT
  Sex: Male
  Weight: 58.97 kg

DRUGS (6)
  1. DURAGESIC-100 [Suspect]
     Route: 062
     Dates: start: 20050101
  2. DURAGESIC-100 [Suspect]
     Indication: PAIN
     Route: 062
     Dates: start: 20110601
  3. DURAGESIC-100 [Suspect]
     Indication: NERVE INJURY
     Route: 062
     Dates: start: 20110601
  4. DURAGESIC-100 [Suspect]
     Route: 062
     Dates: start: 20050101
  5. DURAGESIC-100 [Suspect]
     Route: 062
     Dates: start: 20050101
  6. DURAGESIC-100 [Suspect]
     Indication: CANCER PAIN
     Route: 062
     Dates: start: 20110601

REACTIONS (12)
  - DRUG INEFFECTIVE [None]
  - DRUG PRESCRIBING ERROR [None]
  - WITHDRAWAL SYNDROME [None]
  - APPLICATION SITE PAIN [None]
  - HOT FLUSH [None]
  - INAPPROPRIATE SCHEDULE OF DRUG ADMINISTRATION [None]
  - ADVERSE DRUG REACTION [None]
  - RASH [None]
  - MEMORY IMPAIRMENT [None]
  - DYSPNOEA [None]
  - APPLICATION SITE PRURITUS [None]
  - FEELING OF BODY TEMPERATURE CHANGE [None]
